FAERS Safety Report 20428846 (Version 2)
Quarter: 2022Q1

REPORT INFORMATION
  Report Type: Spontaneous
  Country: GR (occurrence: GR)
  Receive Date: 20220204
  Receipt Date: 20220210
  Transmission Date: 20220424
  Serious: Yes (Death)
  Sender: FDA-Public Use
  Company Number: GR-CELGENE-GRC-20220200610

PATIENT
  Age: 6 Decade
  Sex: Male

DRUGS (1)
  1. POMALIDOMIDE [Suspect]
     Active Substance: POMALIDOMIDE
     Indication: Plasma cell myeloma
     Dosage: 4 MILLIGRAM
     Route: 048

REACTIONS (1)
  - Death [Fatal]
